FAERS Safety Report 6070149-9 (Version None)
Quarter: 2009Q1

REPORT INFORMATION
  Report Type: 
  Country: None (occurrence: None)
  Receive Date: 20090209
  Receipt Date: 20090126
  Transmission Date: 20090719
  Serious: Yes (Hospitalization, Other)
  Sender: FDA-Public Use
  Company Number: US-BAYER-200912526NA

PATIENT
  Sex: Female

DRUGS (1)
  1. TRASYLOL [Suspect]
     Indication: MITRAL VALVE REPLACEMENT

REACTIONS (9)
  - BLOOD CREATININE INCREASED [None]
  - BLOOD UREA INCREASED [None]
  - COAGULOPATHY [None]
  - LUNG DISORDER [None]
  - LUNG INFECTION [None]
  - OXYGEN SUPPLEMENTATION [None]
  - PULMONARY ARTERIAL HYPERTENSION [None]
  - RENAL DISORDER [None]
  - RESPIRATORY FAILURE [None]
